FAERS Safety Report 9777389 (Version 2)
Quarter: 2013Q4

REPORT INFORMATION
  Report Type: Report from Study
  Country: FR (occurrence: FR)
  Receive Date: 20131221
  Receipt Date: 20131226
  Transmission Date: 20140711
  Serious: Yes (Life-Threatening)
  Sender: FDA-Public Use
  Company Number: PHHO2013FR016460

PATIENT
  Sex: 0

DRUGS (3)
  1. RAD 666 / RAD 001A [Suspect]
     Indication: HEART TRANSPLANT
     Dosage: 1.5
     Route: 048
     Dates: start: 20090619
  2. MYCOPHENOLATE MOFETIL [Suspect]
     Indication: HEART TRANSPLANT
     Dosage: 1000
     Route: 048
     Dates: start: 20100312
  3. PREDNISOLONE [Suspect]
     Indication: HEART TRANSPLANT
     Dosage: 2.8 UNK, UNK
     Route: 048
     Dates: start: 19881226

REACTIONS (4)
  - Pneumonia [Recovered/Resolved]
  - Septic shock [Recovered/Resolved with Sequelae]
  - Rhabdomyolysis [Recovered/Resolved]
  - Renal failure acute [Recovered/Resolved with Sequelae]
